FAERS Safety Report 13128310 (Version 3)
Quarter: 2017Q1

REPORT INFORMATION
  Report Type: Spontaneous
  Country: DE (occurrence: DE)
  Receive Date: 20170118
  Receipt Date: 20170228
  Transmission Date: 20170428
  Serious: Yes (Other)
  Sender: FDA-Public Use
  Company Number: DE-ELI_LILLY_AND_COMPANY-DE201701003673

PATIENT
  Age: 51 Year
  Sex: Female

DRUGS (6)
  1. NEPREZOL [Concomitant]
     Active Substance: DIHYDRALAZINE SULFATE
     Indication: PRODUCT USED FOR UNKNOWN INDICATION
  2. CLONIDIN [Concomitant]
     Active Substance: CLONIDINE
     Indication: PRODUCT USED FOR UNKNOWN INDICATION
  3. SPIROBETA [Concomitant]
     Active Substance: SPIRONOLACTONE
     Indication: PRODUCT USED FOR UNKNOWN INDICATION
     Dosage: UNK
  4. BISOPROLOL [Concomitant]
     Active Substance: BISOPROLOL
     Indication: PRODUCT USED FOR UNKNOWN INDICATION
  5. TRULICITY [Suspect]
     Active Substance: DULAGLUTIDE
     Indication: PRODUCT USED FOR UNKNOWN INDICATION
     Dosage: 1.5 MG, UNKNOWN
     Route: 065
     Dates: start: 201609, end: 20170110
  6. ACICLO [Concomitant]
     Indication: PRODUCT USED FOR UNKNOWN INDICATION

REACTIONS (4)
  - Abdominal distension [Recovering/Resolving]
  - Erythema [Recovering/Resolving]
  - Burns second degree [Recovering/Resolving]
  - Injection site vesicles [Unknown]
